FAERS Safety Report 10533774 (Version 1)
Quarter: 2014Q4

REPORT INFORMATION
  Report Type: Spontaneous
  Country: AT (occurrence: AT)
  Receive Date: 20141022
  Receipt Date: 20141022
  Transmission Date: 20150529
  Serious: Yes (Other)
  Sender: FDA-Public Use
  Company Number: AT-JNJFOC-20140919308

PATIENT
  Age: 20 Year
  Sex: Female
  Weight: 84 kg

DRUGS (3)
  1. ELEVIT [Concomitant]
     Active Substance: FOLIC ACID\IRON\MINERALS\VITAMINS
     Route: 048
     Dates: start: 20140910
  2. ORTHO EVRA [Suspect]
     Active Substance: ETHINYL ESTRADIOL\NORELGESTROMIN
     Indication: CONTRACEPTION
     Route: 062
     Dates: start: 201006, end: 20140907
  3. DALACIN [Concomitant]
     Active Substance: CLINDAMYCIN\CLINDAMYCIN PHOSPHATE
     Route: 067
     Dates: start: 20141009, end: 20141014

REACTIONS (2)
  - Exposure during pregnancy [Not Recovered/Not Resolved]
  - Pregnancy with contraceptive patch [Not Recovered/Not Resolved]

NARRATIVE: CASE EVENT DATE: 20140909
